FAERS Safety Report 9933596 (Version 2)
Quarter: 2014Q1

REPORT INFORMATION
  Report Type: Report from Study
  Country: US (occurrence: US)
  Receive Date: 20140228
  Receipt Date: 20140228
  Transmission Date: 20141002
  Serious: Yes (Other)
  Sender: FDA-Public Use
  Company Number: US-MYLANLABS-2013S1025861

PATIENT
  Age: 36 Year
  Sex: Female
  Weight: 58.97 kg

DRUGS (4)
  1. AMNESTEEM CAPSULES [Suspect]
     Indication: ACNE
     Route: 048
     Dates: start: 20131015, end: 20131104
  2. PRILOSEC [Concomitant]
  3. TOPAMAX [Concomitant]
  4. VERAPAMIL [Concomitant]

REACTIONS (2)
  - Deafness [Not Recovered/Not Resolved]
  - Tinnitus [Not Recovered/Not Resolved]
